FAERS Safety Report 9647759 (Version 4)
Quarter: 2013Q4

REPORT INFORMATION
  Report Type: Spontaneous
  Country: GB (occurrence: GB)
  Receive Date: 20131028
  Receipt Date: 20131203
  Transmission Date: 20140711
  Serious: Yes (Death)
  Sender: FDA-Public Use
  Company Number: GB-JNJFOC-20131015318

PATIENT
  Sex: Male

DRUGS (2)
  1. NICORETTE FRESHMINT 2MG GUM [Suspect]
     Indication: PRODUCT USED FOR UNKNOWN INDICATION
     Route: 002
  2. NICORETTE FRESHMINT 4MG GUM [Suspect]
     Indication: PRODUCT USED FOR UNKNOWN INDICATION
     Route: 065

REACTIONS (2)
  - Death [Fatal]
  - Nicotine dependence [Unknown]
